FAERS Safety Report 4513009-4 (Version None)
Quarter: 2004Q4

REPORT INFORMATION
  Report Type: 
  Country: None (occurrence: None)
  Receive Date: 20040928
  Receipt Date: 20040709
  Transmission Date: 20050328
  Serious: No
  Sender: FDA-Public Use
  Company Number: 04P-163-0266486-00

PATIENT
  Age: 61 Year
  Sex: Female
  Weight: 90.7194 kg

DRUGS (11)
  1. HUMIRA [Suspect]
     Indication: RHEUMATOID ARTHRITIS
     Dosage: 40 MG, 1 IN 2 WK, SUBCUTANEOUS
     Route: 058
     Dates: start: 20030502, end: 20040301
  2. HUMIRA [Suspect]
     Indication: RHEUMATOID ARTHRITIS
     Dosage: 40 MG, 1 IN 2 WK, SUBCUTANEOUS
     Route: 058
     Dates: start: 20040301, end: 20040401
  3. HUMIRA [Suspect]
     Indication: RHEUMATOID ARTHRITIS
     Dosage: 40 MG, 1 IN 2 WK, SUBCUTANEOUS
     Route: 058
     Dates: start: 20040601
  4. PREDNISONE [Concomitant]
  5. LEFLUNOMIDE [Concomitant]
  6. ATORVASTATIN [Concomitant]
  7. ESOMEPRAZOLE [Concomitant]
  8. OXYBUTYNIN [Concomitant]
  9. LEXAPRO [Concomitant]
  10. AMLODIPINE BESYLATE [Concomitant]
  11. CYANOCOBALAMIN [Concomitant]

REACTIONS (2)
  - HERPES ZOSTER [None]
  - PRURITUS [None]
